FAERS Safety Report 19193194 (Version 2)
Quarter: 2021Q2

REPORT INFORMATION
  Report Type: Report from Study
  Country: MX (occurrence: MX)
  Receive Date: 20210428
  Receipt Date: 20210510
  Transmission Date: 20210717
  Serious: Yes (Life-Threatening, Hospitalization, Other)
  Sender: FDA-Public Use
  Company Number: MX-SEATTLE GENETICS-2021SGN01982

PATIENT
  Age: 29 Year
  Sex: Male
  Weight: 78 kg

DRUGS (2)
  1. BRENTUXIMAB VEDOTIN [Suspect]
     Active Substance: BRENTUXIMAB VEDOTIN
     Indication: HODGKIN^S DISEASE
     Dosage: UNK
     Route: 042
     Dates: start: 20210223, end: 202104
  2. BENDAMUSTINE [Concomitant]
     Active Substance: BENDAMUSTINE
     Dosage: 90 MILLIGRAM/SQ. METER
     Route: 042

REACTIONS (11)
  - Infection [Unknown]
  - Oedema [Unknown]
  - Septic shock [Recovered/Resolved]
  - Pyrexia [Recovered/Resolved]
  - Peritonitis [Unknown]
  - Vascular occlusion [Unknown]
  - Oxygen saturation [Recovered/Resolved]
  - Hypotension [Recovered/Resolved]
  - Dermatosis [Recovered/Resolved]
  - Tachycardia [Recovered/Resolved]
  - Diarrhoea [Recovered/Resolved]

NARRATIVE: CASE EVENT DATE: 20210316
